FAERS Safety Report 10506609 (Version 1)
Quarter: 2014Q3

REPORT INFORMATION
  Report Type: Spontaneous
  Country: US (occurrence: None)
  Receive Date: 20140915
  Receipt Date: 20140915
  Transmission Date: 20150326
  Serious: Yes (Other)
  Sender: FDA-Public Use
  Company Number: JPI-P-031337

PATIENT
  Age: 36 Year
  Sex: Male
  Weight: 141.5 kg

DRUGS (8)
  1. XYREM [Suspect]
     Active Substance: SODIUM OXYBATE
     Indication: CATAPLEXY
     Route: 048
     Dates: start: 201211, end: 2012
  2. XYREM [Suspect]
     Active Substance: SODIUM OXYBATE
     Indication: NARCOLEPSY
     Route: 048
     Dates: start: 201211, end: 2012
  3. BENICAR [Concomitant]
     Active Substance: OLMESARTAN MEDOXOMIL
  4. LEVOTHYROXINE [Concomitant]
     Active Substance: LEVOTHYROXINE
  5. NUVIGIL [Concomitant]
     Active Substance: ARMODAFINIL
  6. NUTROPIN (SOMATROPIN) [Concomitant]
  7. TRILIPIX [Concomitant]
     Active Substance: FENOFIBRIC ACID
  8. ADDERALL [Concomitant]
     Active Substance: AMPHETAMINE ASPARTATE\AMPHETAMINE SULFATE\DEXTROAMPHETAMINE SACCHARATE\DEXTROAMPHETAMINE SULFATE

REACTIONS (17)
  - Muscle spasms [None]
  - Condition aggravated [None]
  - Wrong technique in drug usage process [None]
  - Musculoskeletal stiffness [None]
  - Arthralgia [None]
  - Anxiety [None]
  - Headache [None]
  - Somnolence [None]
  - Hangover [None]
  - Joint stiffness [None]
  - Insomnia [None]
  - Pain in extremity [None]
  - Weight decreased [None]
  - Stress [None]
  - Oxygen consumption decreased [None]
  - Fatigue [None]
  - Arthritis [None]

NARRATIVE: CASE EVENT DATE: 201302
